FAERS Safety Report 4875971-X (Version None)
Quarter: 2005Q4

REPORT INFORMATION
  Report Type: 
  Country: None (occurrence: None)
  Receive Date: 20051206
  Receipt Date: 20050831
  Transmission Date: 20060501
  Serious: Yes (Death)
  Sender: FDA-Public Use
  Company Number: USA0507102659

PATIENT
  Age: 45 Year
  Sex: Male

DRUGS (5)
  1. CYMBALTA [Suspect]
     Indication: DEPRESSION
     Dosage: 30 MG DAY
     Dates: start: 20050524, end: 20050628
  2. PAXIL CR [Concomitant]
  3. PAXIL [Concomitant]
  4. VALIUM [Concomitant]
  5. REMERON [Concomitant]

REACTIONS (3)
  - COMPLETED SUICIDE [None]
  - FIBROMYALGIA [None]
  - INSOMNIA [None]
